FAERS Safety Report 6252395-4 (Version None)
Quarter: 2009Q2

REPORT INFORMATION
  Report Type: 
  Country: None (occurrence: None)
  Receive Date: 20090622
  Receipt Date: 20090612
  Transmission Date: 20091009
  Serious: Yes (Life-Threatening, Hospitalization)
  Sender: FDA-Public Use
  Company Number: ADR4902009 (BFARM REF NO:.DE-BFARM

PATIENT
  Sex: 0

DRUGS (2)
  1. CIPROFLOXACIN [Suspect]
     Dosage: 1500 MG EVERY DAY (750 MG, 2 IN 1 DAY)
  2. CYMEVEN (6 DF) [Concomitant]

REACTIONS (5)
  - ABDOMINAL PAIN UPPER [None]
  - BACK PAIN [None]
  - CYTOMEGALOVIRUS INFECTION [None]
  - FLANK PAIN [None]
  - SALMONELLOSIS [None]
